FAERS Safety Report 19915828 (Version 3)
Quarter: 2021Q4

REPORT INFORMATION
  Report Type: Other
  Country: US (occurrence: US)
  Receive Date: 20211005
  Receipt Date: 20211231
  Transmission Date: 20220303
  Serious: No
  Sender: FDA-Public Use
  Company Number: US-NEUROCRINE BIOSCIENCES INC.-2021NBI05427

PATIENT

DRUGS (7)
  1. INGREZZA [Suspect]
     Active Substance: VALBENAZINE
     Indication: Tardive dyskinesia
     Dosage: 40 MILLIGRAM, QD
     Route: 048
     Dates: start: 20210915
  2. BUSPIRONE [Concomitant]
     Active Substance: BUSPIRONE HYDROCHLORIDE
     Indication: Depression
     Dosage: 7.5 MILLIGRAM, BID
     Route: 048
     Dates: start: 20200710
  3. BUSPIRONE [Concomitant]
     Active Substance: BUSPIRONE HYDROCHLORIDE
     Indication: Anxiety
  4. DIVALPROEX SODIUM [Concomitant]
     Active Substance: DIVALPROEX SODIUM
     Indication: Affective disorder
     Dosage: 3 TABLETS (DAILY), QD
  5. PALIPERIDONE [Concomitant]
     Active Substance: PALIPERIDONE
     Indication: Psychotic disorder
     Dosage: 60 MILLIGRAM, BID
     Route: 048
  6. PROPRANOLOL [Concomitant]
     Active Substance: PROPRANOLOL HYDROCHLORIDE
     Indication: Tremor
     Dosage: 120 MILLIGRAM, QD
     Route: 048
     Dates: start: 202009
  7. TEMAZEPAM [Concomitant]
     Active Substance: TEMAZEPAM
     Indication: Insomnia

REACTIONS (3)
  - Tardive dyskinesia [Recovered/Resolved]
  - Loss of personal independence in daily activities [Recovered/Resolved]
  - Drug ineffective [Unknown]

NARRATIVE: CASE EVENT DATE: 20210901
